FAERS Safety Report 17535168 (Version 2)
Quarter: 2020Q1

REPORT INFORMATION
  Report Type: Report from Study
  Country: None (occurrence: FR)
  Receive Date: 20200313
  Receipt Date: 20200328
  Transmission Date: 20200409
  Serious: Yes (Other)
  Sender: FDA-Public Use
  Company Number: FR-ABBVIE-19K-056-2831380-00

PATIENT
  Age: 75 Year
  Sex: Male

DRUGS (18)
  1. VENCLYXTO [Suspect]
     Active Substance: VENETOCLAX
     Route: 048
     Dates: start: 20190926
  2. ALLOPURINOL. [Concomitant]
     Active Substance: ALLOPURINOL
     Indication: ABDOMINAL PAIN UPPER
  3. AERIUS [Concomitant]
     Indication: HYPERSENSITIVITY
     Dates: start: 201604
  4. PRIMPERAN [Concomitant]
     Active Substance: METOCLOPRAMIDE HYDROCHLORIDE
     Indication: ABDOMINAL PAIN UPPER
  5. VENCLYXTO [Suspect]
     Active Substance: VENETOCLAX
     Route: 048
     Dates: start: 20190626, end: 20190709
  6. SPASFON [Concomitant]
     Indication: PRODUCT USED FOR UNKNOWN INDICATION
     Dates: start: 20190612
  7. VENCLYXTO [Suspect]
     Active Substance: VENETOCLAX
     Indication: CHRONIC LYMPHOCYTIC LEUKAEMIA
     Route: 048
     Dates: start: 20190605, end: 20190611
  8. LOXEN [Concomitant]
     Indication: HYPERTENSION
     Dates: start: 2010
  9. VENCLYXTO [Suspect]
     Active Substance: VENETOCLAX
     Route: 048
     Dates: start: 20190619, end: 20190625
  10. HIZENTRA [Concomitant]
     Active Substance: HUMAN IMMUNOGLOBULIN G
     Indication: HYPOGAMMAGLOBULINAEMIA
     Dates: start: 201606
  11. ULTIBRO [Concomitant]
     Active Substance: GLYCOPYRRONIUM\INDACATEROL
     Indication: ANTIBIOTIC PROPHYLAXIS
     Dates: start: 201905
  12. ZELITREX [Concomitant]
     Active Substance: VALACYCLOVIR HYDROCHLORIDE
     Indication: INFECTION PROPHYLAXIS
     Dates: start: 20190612
  13. VENCLYXTO [Suspect]
     Active Substance: VENETOCLAX
     Route: 048
     Dates: start: 20190710, end: 2019
  14. FASTURTEC [Concomitant]
     Active Substance: RASBURICASE
     Indication: PROPHYLAXIS
     Dates: start: 20190605, end: 20190605
  15. DELURSAN [Concomitant]
     Active Substance: URSODIOL
     Indication: CHOLESTASIS
     Dates: start: 201301
  16. PANTOPRAZOLE [Concomitant]
     Active Substance: PANTOPRAZOLE
     Indication: PROPHYLAXIS
     Dates: start: 20190605
  17. VENCLYXTO [Suspect]
     Active Substance: VENETOCLAX
     Route: 048
     Dates: start: 20190612, end: 20190618
  18. GAVISCON [Concomitant]
     Active Substance: ALUMINUM HYDROXIDE\MAGNESIUM CARBONATE
     Indication: ABDOMINAL PAIN UPPER

REACTIONS (11)
  - Dyspnoea [Recovered/Resolved]
  - Neoplasm [Recovered/Resolved]
  - Diarrhoea [Recovered/Resolved]
  - Anogenital dysplasia [Not Recovered/Not Resolved]
  - Diarrhoea [Recovering/Resolving]
  - Blood potassium decreased [Recovered/Resolved]
  - Flank pain [Recovered/Resolved]
  - Neutropenia [Recovered/Resolved]
  - Diarrhoea [Recovered/Resolved]
  - Pneumonia [Recovered/Resolved]
  - Eczema [Recovering/Resolving]

NARRATIVE: CASE EVENT DATE: 201906
